FAERS Safety Report 13381143 (Version 3)
Quarter: 2017Q2

REPORT INFORMATION
  Report Type: Spontaneous
  Country: US (occurrence: US)
  Receive Date: 20170329
  Receipt Date: 20170424
  Transmission Date: 20170830
  Serious: No
  Sender: FDA-Public Use
  Company Number: US-PFIZER INC-2017111756

PATIENT
  Age: 71 Year
  Sex: Female

DRUGS (5)
  1. VALSART [Concomitant]
     Active Substance: VALSARTAN
     Dosage: UNK
  2. PEPCID [Concomitant]
     Active Substance: FAMOTIDINE
     Dosage: UNK UNK, AS NEEDED
     Route: 048
  3. SUTENT [Suspect]
     Active Substance: SUNITINIB MALATE
     Dosage: 50 MG, CYCLIC [2 WEEKS ON/1 WEEK OFF]
     Dates: start: 20170320
  4. BABY ASPIRIN [Concomitant]
     Active Substance: ASPIRIN
     Dosage: UNK
  5. SUTENT [Suspect]
     Active Substance: SUNITINIB MALATE
     Indication: METASTATIC RENAL CELL CARCINOMA
     Dosage: 50 MG, CYCLIC [2 WEEKS ON/1 WEEK OFF]

REACTIONS (10)
  - Neoplasm recurrence [Unknown]
  - Dysgeusia [Recovering/Resolving]
  - Fatigue [Unknown]
  - Vertigo [Unknown]
  - Asthenia [Unknown]
  - Glossodynia [Recovered/Resolved]
  - Decreased appetite [Recovering/Resolving]
  - Constipation [Recovering/Resolving]
  - Oral pain [Recovered/Resolved]
  - Condition aggravated [Recovering/Resolving]
